FAERS Safety Report 9640308 (Version 1)
Quarter: 2013Q4

REPORT INFORMATION
  Report Type: Spontaneous
  Country: US (occurrence: US)
  Receive Date: 20131023
  Receipt Date: 20131023
  Transmission Date: 20140711
  Serious: Yes (Other)
  Sender: FDA-Public Use
  Company Number: US-AMGEN-USASP2013073257

PATIENT
  Sex: Female

DRUGS (2)
  1. ARANESP [Suspect]
     Indication: ANAEMIA
     Dosage: 300 UNIT, QWK
     Route: 065
  2. CELLCEPT                           /01275102/ [Concomitant]
     Dosage: 1 G, QD

REACTIONS (4)
  - Systemic lupus erythematosus [Unknown]
  - Haemoglobin decreased [Unknown]
  - No therapeutic response [Unknown]
  - Reticulocyte count decreased [Unknown]
